FAERS Safety Report 9252280 (Version 1)
Quarter: 2013Q2

REPORT INFORMATION
  Report Type: Spontaneous
  Country: US (occurrence: US)
  Receive Date: 20130424
  Receipt Date: 20130424
  Transmission Date: 20140414
  Serious: Yes (Hospitalization)
  Sender: FDA-Public Use
  Company Number: US-BAXTER-2013BAX014521

PATIENT
  Age: 58 Year
  Sex: Male

DRUGS (6)
  1. DIANEAL LOW CALCIUM [Suspect]
     Indication: PERITONEAL DIALYSIS
     Route: 033
     Dates: start: 201207, end: 20130408
  2. DIANEAL LOW CALCIUM [Suspect]
     Route: 033
     Dates: start: 201207, end: 20130408
  3. DIANEAL LOW CALCIUM [Suspect]
     Route: 033
     Dates: start: 20130413
  4. DIANEAL LOW CALCIUM [Suspect]
     Indication: PERITONEAL DIALYSIS
     Route: 033
     Dates: start: 201207, end: 20130408
  5. DIANEAL LOW CALCIUM [Suspect]
     Route: 033
     Dates: start: 201207, end: 20130408
  6. DIANEAL LOW CALCIUM [Suspect]
     Route: 033
     Dates: start: 20130413

REACTIONS (2)
  - Ultrafiltration failure [Recovered/Resolved]
  - Asthenia [Recovered/Resolved]
